FAERS Safety Report 12733794 (Version 2)
Quarter: 2020Q3

REPORT INFORMATION
  Report Type: Spontaneous
  Country: US (occurrence: US)
  Receive Date: 20160912
  Receipt Date: 20200804
  Transmission Date: 20201102
  Serious: Yes (Hospitalization)
  Sender: FDA-Public Use
  Company Number: US-JNJFOC-20160510600

PATIENT
  Age: 30 Year
  Sex: Female

DRUGS (1)
  1. XARELTO [Suspect]
     Active Substance: RIVAROXABAN
     Indication: PULMONARY EMBOLISM
     Dosage: 15 MG, TWICE A DAY AND 20 MG, DAILY
     Route: 048
     Dates: start: 20131105, end: 20131111

REACTIONS (2)
  - Menorrhagia [Recovering/Resolving]
  - Renal haemorrhage [Unknown]

NARRATIVE: CASE EVENT DATE: 201311
